FAERS Safety Report 17464365 (Version 3)
Quarter: 2020Q1

REPORT INFORMATION
  Report Type: Report from Study
  Country: CA (occurrence: CA)
  Receive Date: 20200226
  Receipt Date: 20200318
  Transmission Date: 20200409
  Serious: Yes (Other)
  Sender: FDA-Public Use
  Company Number: CA-BAUSCH-BL-2019-062556

PATIENT
  Age: 18 Year
  Sex: Male

DRUGS (5)
  1. SILIQ [Suspect]
     Active Substance: BRODALUMAB
     Route: 058
     Dates: start: 201912, end: 20200309
  2. SILIQ [Suspect]
     Active Substance: BRODALUMAB
     Route: 058
     Dates: start: 201912, end: 201912
  3. SILIQ [Suspect]
     Active Substance: BRODALUMAB
     Dosage: 210 MG/1.5 ML, (Q 2 WEEKS)
     Route: 058
     Dates: start: 201911, end: 2019
  4. SILIQ [Suspect]
     Active Substance: BRODALUMAB
     Indication: PSORIASIS
     Dosage: 210 MG/1.5 ML, (WEEK 0, 1 AND 2)
     Route: 058
     Dates: start: 20191105, end: 20191119
  5. SILIQ [Suspect]
     Active Substance: BRODALUMAB
     Dosage: CHANGED HIS PRESCRIPTION TO Q1 WEEK
     Route: 058
     Dates: start: 2019, end: 2019

REACTIONS (10)
  - Blood pressure systolic increased [Unknown]
  - Fear of injection [Unknown]
  - Psoriasis [Not Recovered/Not Resolved]
  - Condition aggravated [Not Recovered/Not Resolved]
  - Body temperature increased [Not Recovered/Not Resolved]
  - Loss of personal independence in daily activities [Unknown]
  - Blood pressure diastolic abnormal [Not Recovered/Not Resolved]
  - Disease recurrence [Not Recovered/Not Resolved]
  - Blood pressure diastolic decreased [Unknown]
  - Drug ineffective [Unknown]

NARRATIVE: CASE EVENT DATE: 2019
